FAERS Safety Report 20729947 (Version 3)
Quarter: 2022Q3

REPORT INFORMATION
  Report Type: Report from Study
  Country: CA (occurrence: CA)
  Receive Date: 20220420
  Receipt Date: 20220822
  Transmission Date: 20221027
  Serious: Yes (Hospitalization, Other)
  Sender: FDA-Public Use
  Company Number: CA-GLAXOSMITHKLINE-CA2022065169

PATIENT

DRUGS (1)
  1. MEPOLIZUMAB [Suspect]
     Active Substance: MEPOLIZUMAB
     Indication: Asthma
     Dosage: 100 MG, Z EVERY 4 WEEKS
     Route: 058
     Dates: start: 20191126

REACTIONS (10)
  - Seizure [Unknown]
  - Loss of consciousness [Unknown]
  - Facial bones fracture [Unknown]
  - Skin laceration [Unknown]
  - Rib fracture [Unknown]
  - Haemorrhage [Unknown]
  - Fall [Unknown]
  - Head injury [Unknown]
  - COVID-19 [Unknown]
  - Dyspnoea [Unknown]

NARRATIVE: CASE EVENT DATE: 20220101
